FAERS Safety Report 6204604-5 (Version None)
Quarter: 2009Q2

REPORT INFORMATION
  Report Type: 
  Country: None (occurrence: None)
  Receive Date: 20090527
  Receipt Date: 20090324
  Transmission Date: 20091009
  Serious: Yes (Life-Threatening, Hospitalization, Other)
  Sender: FDA-Public Use
  Company Number: DE-JNJFOC-20090304050

PATIENT
  Age: 60 Year
  Sex: Female
  Weight: 70.2 kg

DRUGS (9)
  1. DOXORUBICIN HCL [Suspect]
     Indication: BREAST CANCER
     Dosage: 64 MG
     Route: 042
  2. HERCEPTIN [Concomitant]
     Route: 042
  3. HERCEPTIN [Concomitant]
     Indication: BREAST CANCER
     Dosage: 144 MG
     Route: 042
  4. DEXAMETHASONE 4MG TAB [Concomitant]
     Indication: PREMEDICATION
     Route: 042
  5. CYCLOPHOSPHAMIDE [Concomitant]
     Route: 042
  6. CYCLOPHOSPHAMIDE [Concomitant]
     Indication: BREAST CANCER
     Dosage: 1098 MG
     Route: 042
  7. FURESIS [Concomitant]
     Indication: DIURETIC THERAPY
     Route: 042
  8. MESNA [Concomitant]
     Indication: BLADDER DISORDER
     Route: 048
  9. METOCLOPRAMIDE [Concomitant]
     Indication: VOMITING
     Route: 048

REACTIONS (1)
  - GASTRIC ULCER PERFORATION [None]
